FAERS Safety Report 14177734 (Version 3)
Quarter: 2017Q4

REPORT INFORMATION
  Report Type: Report from Study
  Country: US (occurrence: US)
  Receive Date: 20171110
  Receipt Date: 20171120
  Transmission Date: 20180321
  Serious: Yes (Hospitalization, Other)
  Sender: FDA-Public Use
  Company Number: US-GILEAD-2017-0303975

PATIENT
  Age: 41 Year
  Sex: Female

DRUGS (3)
  1. AMBRISENTAN [Suspect]
     Active Substance: AMBRISENTAN
     Indication: PULMONARY HYPERTENSION
     Dosage: 10 MG, QD
     Route: 065
     Dates: start: 20150710
  2. REMODULIN [Concomitant]
     Active Substance: TREPROSTINIL
     Dates: start: 20170520
  3. SILDENAFIL. [Concomitant]
     Active Substance: SILDENAFIL
     Dates: start: 20170522

REACTIONS (4)
  - Injection site infection [Unknown]
  - Unintentional medical device removal [Unknown]
  - Coma [Unknown]
  - Dyspnoea [Unknown]

NARRATIVE: CASE EVENT DATE: 20171107
